FAERS Safety Report 6822602-5 (Version None)
Quarter: 2010Q3

REPORT INFORMATION
  Report Type: 
  Country: None (occurrence: None)
  Receive Date: 20100708
  Receipt Date: 20100624
  Transmission Date: 20110219
  Serious: Yes (Hospitalization)
  Sender: FDA-Public Use
  Company Number: US-ELI_LILLY_AND_COMPANY-US201006006871

PATIENT
  Sex: Male

DRUGS (2)
  1. ZYPREXA [Suspect]
     Indication: ANXIETY
     Dosage: 10 MG, EACH EVENING
  2. LITHIUM CARBONATE [Concomitant]

REACTIONS (9)
  - ABNORMAL BEHAVIOUR [None]
  - ANXIETY [None]
  - BLOOD GLUCOSE INCREASED [None]
  - BLOOD PRESSURE INCREASED [None]
  - DEPRESSION [None]
  - FAECAL INCONTINENCE [None]
  - OBSESSIVE THOUGHTS [None]
  - OFF LABEL USE [None]
  - SOCIAL AVOIDANT BEHAVIOUR [None]
